FAERS Safety Report 7155562-0 (Version None)
Quarter: 2010Q4

REPORT INFORMATION
  Report Type: 
  Country: None (occurrence: None)
  Receive Date: 20101214
  Receipt Date: 20091116
  Transmission Date: 20110411
  Serious: No
  Sender: FDA-Public Use
  Company Number: US-AMGEN-KDL374992

PATIENT

DRUGS (2)
  1. ENBREL [Suspect]
     Indication: RHEUMATOID ARTHRITIS
     Dosage: UNK UNK, UNK
  2. METHOTREXATE [Concomitant]
     Dosage: 15 MG, QWK
     Route: 048

REACTIONS (5)
  - ARTHRALGIA [None]
  - FINGER DEFORMITY [None]
  - JOINT SWELLING [None]
  - NODULE ON EXTREMITY [None]
  - OEDEMA PERIPHERAL [None]
